FAERS Safety Report 12163301 (Version 1)
Quarter: 2016Q1

REPORT INFORMATION
  Report Type: Spontaneous
  Country: US (occurrence: US)
  Receive Date: 20160309
  Receipt Date: 20160309
  Transmission Date: 20160526
  Serious: No
  Sender: FDA-Public Use
  Company Number: US-ROCHE-1556991

PATIENT
  Sex: Female

DRUGS (1)
  1. XOLAIR [Suspect]
     Active Substance: OMALIZUMAB
     Indication: ASTHMA
     Route: 065
     Dates: start: 20150312

REACTIONS (5)
  - Abdominal discomfort [Unknown]
  - Rash [Unknown]
  - Retching [Unknown]
  - Pruritus [Unknown]
  - Urticaria [Unknown]
